FAERS Safety Report 17940610 (Version 1)
Quarter: 2020Q2

REPORT INFORMATION
  Report Type: Spontaneous
  Country: AT (occurrence: AT)
  Receive Date: 20200625
  Receipt Date: 20200625
  Transmission Date: 20200714
  Serious: Yes (Disabling, Other)
  Sender: FDA-Public Use
  Company Number: AT-SA-2020SA128875

PATIENT

DRUGS (3)
  1. ACETYLSALICYLIC ACID [Suspect]
     Active Substance: ASPIRIN
     Indication: CORONARY ARTERIAL STENT INSERTION
     Dosage: 100 MG, QD (1X DAILY)
     Route: 048
     Dates: start: 20191215
  2. PLAVIX [Suspect]
     Active Substance: CLOPIDOGREL BISULFATE
     Dosage: 75 MG, QD (1-0-0)
     Route: 065
     Dates: start: 20191215
  3. ELIQUIS [Suspect]
     Active Substance: APIXABAN
     Indication: INTRACARDIAC THROMBUS
     Dosage: 10 MG, QD (1-0-1)
     Route: 065
     Dates: start: 20191215

REACTIONS (3)
  - Ischaemic cerebral infarction [Not Recovered/Not Resolved]
  - Treatment noncompliance [Unknown]
  - Thalamic infarction [Not Recovered/Not Resolved]

NARRATIVE: CASE EVENT DATE: 20200430
